FAERS Safety Report 4778406-0 (Version None)
Quarter: 2005Q3

REPORT INFORMATION
  Report Type: 
  Country: None (occurrence: None)
  Receive Date: 20050926
  Receipt Date: 20050920
  Transmission Date: 20060218
  Serious: Yes (Hospitalization)
  Sender: FDA-Public Use
  Company Number: IL-JNJFOC-20050904788

PATIENT
  Age: 13 Year
  Sex: Female
  Weight: 53 kg

DRUGS (3)
  1. PARACETAMOL [Suspect]
  2. PARACETAMOL [Suspect]
  3. DIPYRONE INJ [Suspect]

REACTIONS (5)
  - ARTHRALGIA [None]
  - FLANK PAIN [None]
  - FLUID INTAKE REDUCED [None]
  - MYALGIA [None]
  - RENAL FAILURE ACUTE [None]
